FAERS Safety Report 25555283 (Version 1)
Quarter: 2025Q3

REPORT INFORMATION
  Report Type: Spontaneous
  Country: US (occurrence: US)
  Receive Date: 20250715
  Receipt Date: 20250715
  Transmission Date: 20251020
  Serious: No
  Sender: NOVO NORDISK
  Company Number: US-NOVOPROD-1236640

PATIENT
  Sex: Female

DRUGS (1)
  1. OZEMPIC [Suspect]
     Active Substance: SEMAGLUTIDE
     Indication: Product used for unknown indication
     Dosage: 0.5 MG, QW
     Route: 058

REACTIONS (6)
  - Abnormal weight gain [Unknown]
  - Nausea [Unknown]
  - Vomiting [Unknown]
  - Device leakage [Unknown]
  - Off label use [Unknown]
  - Wrong technique in product usage process [Unknown]
